FAERS Safety Report 6156059-7 (Version None)
Quarter: 2009Q2

REPORT INFORMATION
  Report Type: 
  Country: None (occurrence: None)
  Receive Date: 20090415
  Receipt Date: 20090407
  Transmission Date: 20091009
  Serious: Yes (Other)
  Sender: FDA-Public Use
  Company Number: US-ELI_LILLY_AND_COMPANY-US200903002531

PATIENT
  Age: 79 Year
  Sex: Female
  Weight: 82.993 kg

DRUGS (15)
  1. EVISTA [Suspect]
     Indication: OSTEOPOROSIS
     Dosage: 60 MG, DAILY (1/D)
     Route: 065
  2. LIPITOR [Concomitant]
     Indication: BLOOD CHOLESTEROL INCREASED
     Dosage: 20 MG, EACH EVENING
     Route: 048
  3. SYNTHROID [Concomitant]
     Indication: HYPOTHYROIDISM
     Dosage: 100 UG, DAILY (1/D)
     Route: 048
  4. KLOR-CON [Concomitant]
     Indication: BLOOD POTASSIUM DECREASED
     Dosage: 10 UG, DAILY (1/D)
     Route: 048
  5. OMEPRAZOLE [Concomitant]
     Indication: GASTRITIS
     Dosage: 20 MG, DAILY (1/D)
     Route: 048
  6. METOPROLOL TARTRATE [Concomitant]
     Indication: HYPERTENSION
     Dosage: 50 MG, DAILY (1/D)
     Route: 048
  7. FOLIC ACID [Concomitant]
     Dosage: UNK, UNKNOWN
     Route: 065
  8. CITRACAL + D [Concomitant]
     Dosage: UNK, UNKNOWN
     Route: 065
  9. CENTRUM SILVER [Concomitant]
     Dosage: UNK, UNKNOWN
     Route: 065
  10. VITAMIN B-12 [Concomitant]
     Dosage: UNK, UNKNOWN
     Route: 065
  11. FISH OIL [Concomitant]
     Dosage: UNK, UNKNOWN
     Route: 065
  12. GLUCOSAMINE [Concomitant]
     Dosage: UNK, UNKNOWN
     Route: 065
  13. GINKO BILOBA [Concomitant]
     Dosage: UNK, UNKNOWN
     Route: 065
  14. IRON [Concomitant]
     Dosage: UNK, UNKNOWN
     Route: 065
  15. VITAMIN D [Concomitant]
     Dosage: UNK, UNKNOWN
     Route: 065

REACTIONS (4)
  - ARTHRALGIA [None]
  - ARTHROSCOPIC SURGERY [None]
  - GAIT DISTURBANCE [None]
  - OEDEMA PERIPHERAL [None]
